FAERS Safety Report 11190765 (Version 1)
Quarter: 2015Q2

REPORT INFORMATION
  Report Type: Spontaneous
  Country: US (occurrence: US)
  Receive Date: 20150615
  Receipt Date: 20150615
  Transmission Date: 20150821
  Serious: Yes (Hospitalization)
  Sender: FDA-Public Use
  Company Number: US-TEVA-569643USA

PATIENT
  Age: 50 Year
  Sex: Male

DRUGS (1)
  1. TRAZODONE [Suspect]
     Active Substance: TRAZODONE HYDROCHLORIDE
     Route: 065

REACTIONS (8)
  - Bradycardia [Unknown]
  - Asthenia [Unknown]
  - Stevens-Johnson syndrome [Unknown]
  - Agitation [Unknown]
  - Muscle twitching [Unknown]
  - Confusional state [Unknown]
  - Anxiety [Unknown]
  - Heart rate decreased [Unknown]
